FAERS Safety Report 6637681-8 (Version None)
Quarter: 2010Q1

REPORT INFORMATION
  Report Type: 
  Country: None (occurrence: None)
  Receive Date: 20100317
  Receipt Date: 20100302
  Transmission Date: 20100710
  Serious: Yes (Other)
  Sender: FDA-Public Use
  Company Number: US-BAYER-201018217GPV

PATIENT

DRUGS (5)
  1. FLUDARABINE [Suspect]
     Indication: BONE MARROW CONDITIONING REGIMEN
  2. MELPHALAN [Suspect]
     Indication: BONE MARROW TRANSPLANT
  3. RABBIT ATG [Suspect]
     Indication: BONE MARROW TRANSPLANT
  4. RITUXIMAB [Concomitant]
     Indication: ACUTE GRAFT VERSUS HOST DISEASE
  5. MULTIPLE IMMUNOSUPPRESSIVE AGENTS [Concomitant]
     Indication: ACUTE GRAFT VERSUS HOST DISEASE

REACTIONS (3)
  - ACUTE GRAFT VERSUS HOST DISEASE [None]
  - CENTRAL NERVOUS SYSTEM LESION [None]
  - EPSTEIN-BARR VIRUS ASSOCIATED LYMPHOPROLIFERATIVE DISORDER [None]
